FAERS Safety Report 17284660 (Version 1)
Quarter: 2020Q1

REPORT INFORMATION
  Report Type: Spontaneous
  Country: US (occurrence: US)
  Receive Date: 20200117
  Receipt Date: 20200117
  Transmission Date: 20200409
  Serious: No
  Sender: FDA-Public Use
  Company Number: US-ASTRAZENECA-2019SF86057

PATIENT
  Sex: Female
  Weight: 81.6 kg

DRUGS (4)
  1. BYDUREON [Suspect]
     Active Substance: EXENATIDE
     Indication: TYPE 2 DIABETES MELLITUS
     Route: 058
     Dates: start: 2018, end: 201909
  2. BASAGLAR [Concomitant]
     Active Substance: INSULIN GLARGINE
     Indication: TYPE 2 DIABETES MELLITUS
     Dosage: EVERY MORNING
     Route: 058
     Dates: start: 201909
  3. BYDUREON BCISE [Suspect]
     Active Substance: EXENATIDE
     Indication: TYPE 2 DIABETES MELLITUS
     Route: 058
     Dates: start: 201909
  4. METFORMIN [Concomitant]
     Active Substance: METFORMIN HYDROCHLORIDE
     Indication: TYPE 2 DIABETES MELLITUS
     Route: 048

REACTIONS (7)
  - Diabetes mellitus inadequate control [Recovering/Resolving]
  - Injection site pain [Unknown]
  - Injection site extravasation [Unknown]
  - Blood glucose decreased [Unknown]
  - Incorrect dose administered by device [Unknown]
  - Device issue [Unknown]
  - Intentional device misuse [Unknown]
